FAERS Safety Report 14846383 (Version 1)
Quarter: 2018Q2

REPORT INFORMATION
  Report Type: Spontaneous
  Country: US (occurrence: US)
  Receive Date: 20180504
  Receipt Date: 20180504
  Transmission Date: 20180711
  Serious: No
  Sender: FDA-Public Use
  Company Number: US-TEVA-761687ACC

PATIENT
  Age: 21 Year
  Sex: Female
  Weight: 64 kg

DRUGS (1)
  1. AVIANE [Suspect]
     Active Substance: ETHINYL ESTRADIOL\LEVONORGESTREL
     Dosage: DOSE STRENGTH:  0.10 MG/0.02 MG

REACTIONS (3)
  - Vaginal haemorrhage [Not Recovered/Not Resolved]
  - Weight increased [Unknown]
  - Muscle spasms [Unknown]

NARRATIVE: CASE EVENT DATE: 2017
